FAERS Safety Report 26027680 (Version 2)
Quarter: 2025Q4

REPORT INFORMATION
  Report Type: Report from Study
  Country: US (occurrence: US)
  Receive Date: 20251111
  Receipt Date: 20251112
  Transmission Date: 20260118
  Serious: Yes (Other)
  Sender: ABBVIE
  Company Number: US-ABBVIE-6542349

PATIENT

DRUGS (2)
  1. VENETOCLAX [Suspect]
     Active Substance: VENETOCLAX
     Indication: T-cell prolymphocytic leukaemia
     Route: 048
  2. CLADRIBINE [Suspect]
     Active Substance: CLADRIBINE
     Indication: T-cell prolymphocytic leukaemia
     Route: 042

REACTIONS (3)
  - Myelosuppression [Unknown]
  - Off label use [Unknown]
  - Drug ineffective for unapproved indication [Unknown]
